FAERS Safety Report 7288410-9 (Version None)
Quarter: 2011Q1

REPORT INFORMATION
  Report Type: 
  Country: None (occurrence: None)
  Receive Date: 20110211
  Receipt Date: 20110207
  Transmission Date: 20110831
  Serious: Yes (Other)
  Sender: FDA-Public Use
  Company Number: A0885736A

PATIENT
  Sex: Female
  Weight: 51 kg

DRUGS (9)
  1. MORPHINE [Concomitant]
     Indication: PAIN
     Dosage: 10MG PER DAY
     Route: 030
     Dates: start: 20061209, end: 20061209
  2. DOCETAXEL [Suspect]
     Dosage: 60MGM2 CYCLIC
     Route: 042
     Dates: start: 20060504
  3. TRASTUZUMAB [Suspect]
     Dosage: 204MGK WEEKLY
     Route: 042
     Dates: start: 20060504
  4. TRAMADOL HCL [Concomitant]
     Indication: PAIN
     Dosage: 100MG AS REQUIRED
     Route: 048
     Dates: start: 20061210, end: 20061213
  5. INNOHEP [Concomitant]
     Dosage: 3500IU PER DAY
     Route: 058
     Dates: start: 20061210, end: 20061213
  6. PARACETAMOL [Concomitant]
     Indication: PAIN
     Dosage: 4G FOUR TIMES PER DAY
     Route: 048
     Dates: start: 20061209, end: 20061213
  7. LAPATINIB [Suspect]
     Dosage: 500MG PER DAY
     Route: 048
     Dates: start: 20060504
  8. AUGMENTIN '125' [Concomitant]
     Dosage: 1.2G THREE TIMES PER DAY
     Route: 042
     Dates: start: 20061208, end: 20061201
  9. DICLOFENAC SODIUM [Concomitant]
     Indication: PAIN
     Dosage: 100MG PER DAY
     Route: 048
     Dates: start: 20061209, end: 20061210

REACTIONS (1)
  - HAEMOGLOBIN DECREASED [None]
